FAERS Safety Report 11350196 (Version 1)
Quarter: 2015Q3

REPORT INFORMATION
  Report Type: Spontaneous
  Country: US (occurrence: None)
  Receive Date: 20150806
  Receipt Date: 20150806
  Transmission Date: 20151125
  Serious: No
  Sender: FDA-Public Use
  Company Number: None

PATIENT
  Age: 63 Year

DRUGS (1)
  1. BLINK GEL TEARS [Suspect]
     Active Substance: POLYETHYLENE GLYCOL 400
     Indication: DRY EYE
     Dosage: 1-2 DROPS IN THE EYE
     Route: 031
     Dates: start: 20150803, end: 20150805

REACTIONS (4)
  - Lacrimation increased [None]
  - Eye irritation [None]
  - Eye pruritus [None]
  - Asthenopia [None]

NARRATIVE: CASE EVENT DATE: 20150805
